FAERS Safety Report 10468684 (Version 3)
Quarter: 2015Q1

REPORT INFORMATION
  Report Type: Report from Study
  Country: US (occurrence: US)
  Receive Date: 20140922
  Receipt Date: 20150219
  Transmission Date: 20150720
  Serious: Yes (Hospitalization, Other)
  Sender: FDA-Public Use
  Company Number: US-ALEXION PHARMACEUTICALS INC-A201002334

PATIENT

DRUGS (2)
  1. SOLIRIS [Suspect]
     Active Substance: ECULIZUMAB
     Dosage: 900 MG, Q2W
     Route: 042
  2. SOLIRIS [Suspect]
     Active Substance: ECULIZUMAB
     Indication: PAROXYSMAL NOCTURNAL HAEMOGLOBINURIA
     Dosage: UNK UNK, Q2W
     Route: 042
     Dates: start: 20100610

REACTIONS (13)
  - Chest pain [Unknown]
  - Influenza [Unknown]
  - Liver function test abnormal [Unknown]
  - Abdominal distension [Unknown]
  - Hangover [Unknown]
  - Intervertebral disc protrusion [Unknown]
  - Pain [Unknown]
  - Fatigue [Unknown]
  - Herpes zoster [Unknown]
  - Pneumonia [Unknown]
  - Somnolence [Unknown]
  - Arthritis [Unknown]
  - Sciatica [Unknown]

NARRATIVE: CASE EVENT DATE: 201206
